FAERS Safety Report 23564963 (Version 3)
Quarter: 2024Q1

REPORT INFORMATION
  Report Type: Spontaneous
  Country: US (occurrence: US)
  Receive Date: 20240226
  Receipt Date: 20240325
  Transmission Date: 20240410
  Serious: Yes (Hospitalization)
  Sender: FDA-Public Use
  Company Number: US-PFIZER INC-202400047683

PATIENT
  Age: 69 Year
  Sex: Female
  Weight: 90.72 kg

DRUGS (3)
  1. SOMATROPIN [Suspect]
     Active Substance: SOMATROPIN
     Indication: Hypothyroidism
     Dosage: 0.4 MG, 1X/DAY
  2. SOMATROPIN [Suspect]
     Active Substance: SOMATROPIN
     Indication: Hormone level abnormal
  3. LOSARTAN POTASSIUM [Concomitant]
     Active Substance: LOSARTAN POTASSIUM
     Indication: Hypertension
     Dosage: 50 MG

REACTIONS (4)
  - Asthenia [Unknown]
  - Illness [Unknown]
  - Product availability issue [Unknown]
  - Therapy interrupted [Unknown]
